FAERS Safety Report 7477620-3 (Version None)
Quarter: 2011Q2

REPORT INFORMATION
  Report Type: 
  Country: None (occurrence: None)
  Receive Date: 20110513
  Receipt Date: 20101217
  Transmission Date: 20111010
  Serious: Yes (Hospitalization, Other)
  Sender: FDA-Public Use
  Company Number: US-BAYER-201033577NA

PATIENT
  Age: 30 Year
  Sex: Female
  Weight: 62.132 kg

DRUGS (4)
  1. YASMIN [Suspect]
     Indication: ACNE
  2. ADVIL LIQUI-GELS [Concomitant]
  3. YAZ [Suspect]
     Indication: ACNE
  4. DROSPIRENONE AND ETHINYL ESTRADIOL [Suspect]
     Indication: ACNE

REACTIONS (5)
  - INJURY [None]
  - ADENOMYOSIS [None]
  - HEPATOBILIARY SCAN ABNORMAL [None]
  - CHOLECYSTITIS CHRONIC [None]
  - CHOLESTEROSIS [None]
